FAERS Safety Report 8808541 (Version 2)
Quarter: 2012Q4

REPORT INFORMATION
  Report Type: 
  Country: CO (occurrence: CO)
  Receive Date: 20120926
  Receipt Date: 20121123
  Transmission Date: 20130627
  Serious: Yes (Hospitalization, Other)
  Sender: FDA-Public Use
  Company Number: PHHY2012CO083092

PATIENT
  Age: 56 Year
  Sex: Female

DRUGS (2)
  1. TASIGNA [Suspect]
     Indication: CHRONIC MYELOID LEUKAEMIA
     Route: 048
     Dates: start: 20120511
  2. EXELON [Concomitant]
     Dosage: 5.4 ug/day
     Route: 062

REACTIONS (8)
  - Transient ischaemic attack [Recovered/Resolved]
  - Disorientation [Unknown]
  - Staring [Unknown]
  - VIIth nerve paralysis [Unknown]
  - Nuchal rigidity [Recovering/Resolving]
  - Dyslalia [Recovering/Resolving]
  - Masked facies [Recovering/Resolving]
  - Dysphagia [Recovering/Resolving]
